FAERS Safety Report 12603944 (Version 1)
Quarter: 2016Q3

REPORT INFORMATION
  Report Type: Report from Study
  Country: US (occurrence: US)
  Receive Date: 20160728
  Receipt Date: 20160728
  Transmission Date: 20161109
  Serious: Yes (Other)
  Sender: FDA-Public Use
  Company Number: US-BAXALTA-2016BLT005358

PATIENT
  Age: 14 Year
  Sex: Female

DRUGS (1)
  1. GAMMAGARD LIQUID [Suspect]
     Active Substance: HUMAN IMMUNOGLOBULIN G
     Indication: PRIMARY IMMUNODEFICIENCY SYNDROME
     Dosage: 7 G, UNK
     Route: 065

REACTIONS (8)
  - Infertility female [Unknown]
  - Malaise [Unknown]
  - Epilepsy [Unknown]
  - Developmental hip dysplasia [Unknown]
  - Pain [Unknown]
  - Multimorbidity [Unknown]
  - Menopausal symptoms [Unknown]
  - Generalised tonic-clonic seizure [Unknown]

NARRATIVE: CASE EVENT DATE: 201603
